FAERS Safety Report 21251632 (Version 2)
Quarter: 2022Q4

REPORT INFORMATION
  Report Type: Spontaneous
  Country: VN (occurrence: None)
  Receive Date: 20220825
  Receipt Date: 20221003
  Transmission Date: 20230113
  Serious: Yes (Death)
  Sender: FDA-Public Use
  Company Number: VN-ROCHE-3165352

PATIENT
  Age: 62 Year
  Sex: Male
  Weight: 60 kg

DRUGS (7)
  1. RITUXIMAB [Suspect]
     Active Substance: RITUXIMAB
     Indication: Non-Hodgkin^s lymphoma stage II
     Route: 065
  2. OBINUTUZUMAB [Suspect]
     Active Substance: OBINUTUZUMAB
     Indication: Non-Hodgkin^s lymphoma stage II
     Dosage: CYCLE 1: OBINUTUZUMAB  1000MG BENDAMUSTINE  125MG, CYCLES 2-6: OBINUTUZUMAB 1000MG, BENDAMUSTINE  12
     Route: 042
  3. CYCLOPHOSPHAMIDE [Suspect]
     Active Substance: CYCLOPHOSPHAMIDE
     Indication: Non-Hodgkin^s lymphoma stage II
     Route: 065
  4. DOXORUBICIN [Suspect]
     Active Substance: DOXORUBICIN
     Indication: Non-Hodgkin^s lymphoma stage II
     Route: 065
  5. VINCRISTINE [Suspect]
     Active Substance: VINCRISTINE
     Indication: Non-Hodgkin^s lymphoma stage II
     Route: 065
  6. PREDNISOLONE [Suspect]
     Active Substance: PREDNISOLONE
     Indication: Non-Hodgkin^s lymphoma stage II
     Route: 065
  7. BENDAMUSTINE [Suspect]
     Active Substance: BENDAMUSTINE
     Indication: Non-Hodgkin^s lymphoma stage II
     Dosage: CYCLE 1: OBINUTUZUMAB  1000MG BENDAMUSTINE  125MG, CYCLES 2-6: OBINUTUZUMAB 1000MG, BENDAMUSTINE  12
     Route: 065

REACTIONS (5)
  - COVID-19 pneumonia [Fatal]
  - Hepatic enzyme increased [Unknown]
  - Weight decreased [Unknown]
  - Anxiety [Unknown]
  - Off label use [Unknown]
